FAERS Safety Report 18008162 (Version 1)
Quarter: 2020Q3

REPORT INFORMATION
  Report Type: Spontaneous
  Country: CN (occurrence: CN)
  Receive Date: 20200710
  Receipt Date: 20200710
  Transmission Date: 20201103
  Serious: Yes (Hospitalization, Other)
  Sender: FDA-Public Use
  Company Number: CN-ASTRAZENECA-2020SE85183

PATIENT
  Age: 57 Year
  Sex: Female

DRUGS (6)
  1. TAGRISSO [Suspect]
     Active Substance: OSIMERTINIB
     Dosage: TOOK IRESSA ONE DAY AND TAGRISSO THE NEXT DAY ALTERNATELY
     Route: 048
     Dates: start: 201910
  2. TRADITIONAL CHINESE MEDICINE [Concomitant]
     Active Substance: HERBALS\HOMEOPATHICS
     Indication: NON-SMALL CELL LUNG CANCER
     Dosage: ONCE IN THE MORNING AND ONCE IN THE EVENING, TWICE A DAY, HALF PACKAGE ONE TIME
     Route: 048
     Dates: end: 201912
  3. IRESSA [Suspect]
     Active Substance: GEFITINIB
     Indication: NON-SMALL CELL LUNG CANCER
     Dosage: TOOK IRESSA ONE DAY AND TAGRISSO THE NEXT DAY ALTERNATELY
     Route: 048
     Dates: start: 201910
  4. IRESSA [Suspect]
     Active Substance: GEFITINIB
     Indication: NON-SMALL CELL LUNG CANCER
     Dosage: UNKNOWN DOSE, ONCE A DAY
     Route: 048
  5. BEVACIZUMAB. [Concomitant]
     Active Substance: BEVACIZUMAB
     Route: 065
  6. TAGRISSO [Suspect]
     Active Substance: OSIMERTINIB
     Dosage: DOSE AND FREQUENCY UNKNOWN
     Route: 048

REACTIONS (5)
  - Haemoptysis [Unknown]
  - Drug ineffective [Unknown]
  - Liver injury [Recovered/Resolved]
  - Weight decreased [Not Recovered/Not Resolved]
  - Drug resistance [Unknown]

NARRATIVE: CASE EVENT DATE: 2019
